FAERS Safety Report 12810071 (Version 1)
Quarter: 2016Q4

REPORT INFORMATION
  Report Type: Spontaneous
  Country: US (occurrence: US)
  Receive Date: 20161004
  Receipt Date: 20161004
  Transmission Date: 20170207
  Serious: Yes (Hospitalization)
  Sender: FDA-Public Use
  Company Number: None

PATIENT
  Age: 58 Year
  Sex: Male
  Weight: 93.1 kg

DRUGS (1)
  1. PREGABALIN. [Suspect]
     Active Substance: PREGABALIN
     Indication: DRUG THERAPY
     Route: 048
     Dates: start: 20160416, end: 20160523

REACTIONS (6)
  - Leukopenia [None]
  - Cold sweat [None]
  - C-reactive protein increased [None]
  - Cough [None]
  - Feeling hot [None]
  - Weight decreased [None]

NARRATIVE: CASE EVENT DATE: 20160523
